FAERS Safety Report 19269969 (Version 1)
Quarter: 2021Q2

REPORT INFORMATION
  Report Type: Spontaneous
  Country: CA (occurrence: CA)
  Receive Date: 20210518
  Receipt Date: 20210518
  Transmission Date: 20210717
  Serious: Yes (Life-Threatening, Other)
  Sender: FDA-Public Use
  Company Number: CA-TEVA-2021-CA-1911671

PATIENT
  Age: 15 Year
  Sex: Male
  Weight: 65 kg

DRUGS (42)
  1. CICLOSPORIN [Suspect]
     Active Substance: CYCLOSPORINE
     Route: 042
  2. AMITRIPTYLINE [Concomitant]
     Active Substance: AMITRIPTYLINE
  3. CHLORHEXIDINE [Concomitant]
     Active Substance: CHLORHEXIDINE
  4. LORAZEPAM. [Concomitant]
     Active Substance: LORAZEPAM
  5. MESNA. [Concomitant]
     Active Substance: MESNA
  6. NYSTATIN. [Concomitant]
     Active Substance: NYSTATIN
  7. PENTAMIDINE ISETHIONATE. [Concomitant]
     Active Substance: PENTAMIDINE ISETHIONATE
  8. ZINC. [Concomitant]
     Active Substance: ZINC
  9. CYCLOPHOSPHAMIDE. [Suspect]
     Active Substance: CYCLOPHOSPHAMIDE
     Indication: BONE MARROW TRANSPLANT
     Route: 042
  10. ATROPINE. [Concomitant]
     Active Substance: ATROPINE
  11. CALCIUM + VITAMIN D3 [Concomitant]
     Active Substance: CALCIUM CARBONATE\CHOLECALCIFEROL
  12. GINGEMBRE [Concomitant]
  13. HEPARIN CALCIUM [Concomitant]
     Active Substance: HEPARIN CALCIUM
  14. POLYETHYLENE GLYCOL [Concomitant]
     Active Substance: POLYETHYLENE GLYCOLS
  15. POTASSIUM [Concomitant]
     Active Substance: POTASSIUM
  16. URSODEOXYCHOLIC ACID [Concomitant]
     Active Substance: URSODIOL
  17. CEFTAZIDIME. [Concomitant]
     Active Substance: CEFTAZIDIME
  18. DIMENHYDRINATE. [Concomitant]
     Active Substance: DIMENHYDRINATE
  19. FLUCONAZOLE. [Concomitant]
     Active Substance: FLUCONAZOLE
  20. FUROSEMIDE. [Concomitant]
     Active Substance: FUROSEMIDE
  21. HYDROCORTISONE. [Concomitant]
     Active Substance: HYDROCORTISONE
  22. FAMCICLOVIR. [Concomitant]
     Active Substance: FAMCICLOVIR
  23. METHYLPREDNISOLONE NOS [Concomitant]
     Active Substance: METHYLPREDNISOLONE
  24. OLANZAPINE. [Concomitant]
     Active Substance: OLANZAPINE
  25. METHOTREXATE. [Suspect]
     Active Substance: METHOTREXATE
     Indication: BONE MARROW TRANSPLANT
     Route: 042
  26. CICLOSPORIN [Suspect]
     Active Substance: CYCLOSPORINE
     Indication: BONE MARROW TRANSPLANT
     Dosage: 250 MILLIGRAM DAILY;
     Route: 048
  27. ONDANSETRON [Concomitant]
     Active Substance: ONDANSETRON
  28. RANITIDINE. [Concomitant]
     Active Substance: RANITIDINE
  29. AMLODIPINE [Concomitant]
     Active Substance: AMLODIPINE BESYLATE
  30. BETAMETHASONE. [Concomitant]
     Active Substance: BETAMETHASONE
  31. CHOLECALCIFEROL [Concomitant]
     Active Substance: CHOLECALCIFEROL
  32. EPINEPHRINE. [Concomitant]
     Active Substance: EPINEPHRINE
  33. FOSCAVIR [Concomitant]
     Active Substance: FOSCARNET SODIUM
  34. LIDOCAINE. [Concomitant]
     Active Substance: LIDOCAINE
  35. MAGNESIUM [Concomitant]
     Active Substance: MAGNESIUM
  36. METOCLOPRAMIDE. [Concomitant]
     Active Substance: METOCLOPRAMIDE
  37. MUPIROCIN. [Concomitant]
     Active Substance: MUPIROCIN
  38. VANCOMYCIN [Concomitant]
     Active Substance: VANCOMYCIN
  39. ANTI?THYMOCYTE GLOBULIN (RABBIT) NOS [Suspect]
     Active Substance: LAPINE T-LYMPHOCYTE IMMUNE GLOBULIN
     Indication: BONE MARROW TRANSPLANT
     Dosage: 120 MILLIGRAM DAILY;
     Route: 042
  40. CETIRIZINE [Concomitant]
     Active Substance: CETIRIZINE HYDROCHLORIDE
  41. DIPHENHYDRAMINE. [Concomitant]
     Active Substance: DIPHENHYDRAMINE
  42. PREDNISONE. [Concomitant]
     Active Substance: PREDNISONE

REACTIONS (3)
  - Stomatitis [Recovered/Resolved]
  - Aplasia [Recovered/Resolved]
  - Pyrexia [Recovered/Resolved]
